FAERS Safety Report 12223376 (Version 1)
Quarter: 2016Q1

REPORT INFORMATION
  Report Type: Spontaneous
  Country: US (occurrence: US)
  Receive Date: 20160330
  Receipt Date: 20160330
  Transmission Date: 20160526
  Serious: No
  Sender: FDA-Public Use
  Company Number: PHEH2016US007336

PATIENT
  Age: 70 Year
  Sex: Female

DRUGS (1)
  1. TASIGNA [Suspect]
     Active Substance: NILOTINIB
     Indication: PRODUCT USED FOR UNKNOWN INDICATION
     Dosage: 150 MG, QD
     Route: 048

REACTIONS (8)
  - Renal disorder [Unknown]
  - Drug intolerance [Unknown]
  - Splenomegaly [Unknown]
  - Liver disorder [Unknown]
  - Malaise [Unknown]
  - Pancreatic disorder [Unknown]
  - Amylase increased [Unknown]
  - Weight decreased [Unknown]

NARRATIVE: CASE EVENT DATE: 201510
